FAERS Safety Report 11652312 (Version 2)
Quarter: 2016Q2

REPORT INFORMATION
  Report Type: Spontaneous
  Country: IT (occurrence: IT)
  Receive Date: 20151022
  Receipt Date: 20160428
  Transmission Date: 20160815
  Serious: Yes (Hospitalization, Other)
  Sender: FDA-Public Use
  Company Number: IT-BRISTOL-MYERS SQUIBB COMPANY-BMS-2015-069019

PATIENT
  Age: 73 Year
  Sex: Male

DRUGS (1)
  1. YERVOY [Suspect]
     Active Substance: IPILIMUMAB
     Indication: METASTATIC MALIGNANT MELANOMA
     Dosage: 3 MG/KG, QCYCLE
     Route: 042
     Dates: start: 20150626, end: 20150807

REACTIONS (3)
  - Colitis [Recovered/Resolved]
  - Surgery [Unknown]
  - Fistula [Recovered/Resolved]

NARRATIVE: CASE EVENT DATE: 20150810
